FAERS Safety Report 24463701 (Version 1)
Quarter: 2024Q4

REPORT INFORMATION
  Report Type: Report from Study
  Country: US (occurrence: US)
  Receive Date: 20241018
  Receipt Date: 20241018
  Transmission Date: 20250114
  Serious: No
  Sender: ROCHE
  Company Number: US-ROCHE-3484891

PATIENT
  Age: 70 Year
  Sex: Male
  Weight: 80.74 kg

DRUGS (1)
  1. XOLAIR [Suspect]
     Active Substance: OMALIZUMAB
     Indication: Food allergy
     Dosage: 150 MG IN EACH ARM, MOST RECENT DOSE WAS ON 04/DEC/2023
     Route: 058
     Dates: start: 20230807

REACTIONS (2)
  - Eye swelling [Recovered/Resolved]
  - Off label use [Unknown]

NARRATIVE: CASE EVENT DATE: 20230807
